FAERS Safety Report 21652079 (Version 1)
Quarter: 2022Q4

REPORT INFORMATION
  Report Type: Spontaneous
  Country: US (occurrence: None)
  Receive Date: 20221125
  Receipt Date: 20221125
  Transmission Date: 20230113
  Serious: Yes (Hospitalization)
  Sender: FDA-Public Use
  Company Number: None

PATIENT
  Age: 74 Year
  Sex: Male

DRUGS (1)
  1. LORAZEPAM [Suspect]
     Active Substance: LORAZEPAM
     Dates: start: 20180309

REACTIONS (3)
  - Intentional product use issue [None]
  - Hypersomnia [None]
  - Confusional state [None]

NARRATIVE: CASE EVENT DATE: 20221104
